FAERS Safety Report 10144482 (Version 1)
Quarter: 2014Q2

REPORT INFORMATION
  Report Type: Report from Study
  Country: US (occurrence: US)
  Receive Date: 20140430
  Receipt Date: 20140430
  Transmission Date: 20141212
  Serious: Yes (Other)
  Sender: FDA-Public Use
  Company Number: US-GILEAD-2014-0100944

PATIENT
  Age: 72 Year
  Sex: Female

DRUGS (2)
  1. RANOLAZINE [Suspect]
     Indication: ANGINA PECTORIS
     Dosage: 1000 MG, QD
     Route: 048
     Dates: end: 2012
  2. RANOLAZINE [Suspect]
     Dosage: 500 MG, QHS
     Route: 048
     Dates: end: 2012

REACTIONS (1)
  - Hepatic enzyme increased [Recovered/Resolved]
